FAERS Safety Report 8276014 (Version 2)
Quarter: 2012Q4

REPORT INFORMATION
  Report Type: 
  Country: US (occurrence: US)
  Receive Date: 20111206
  Receipt Date: 20120918
  Transmission Date: 20130627
  Serious: Yes (Hospitalization, Other)
  Sender: FDA-Public Use
  Company Number: US-US-EMD SERONO, INC.-7072976

PATIENT
  Age: 47 None
  Sex: Female

DRUGS (9)
  1. REBIF [Suspect]
     Indication: MULTIPLE SCLEROSIS
     Route: 058
     Dates: start: 20100927, end: 20110621
  2. REBIF [Suspect]
     Route: 058
     Dates: start: 20110718
  3. REBIF [Suspect]
     Route: 058
  4. NEURONTIN [Concomitant]
     Indication: PRODUCT USED FOR UNKNOWN INDICATION
  5. CYMBALTA [Concomitant]
     Indication: PRODUCT USED FOR UNKNOWN INDICATION
  6. IBUPROFEN [Concomitant]
     Indication: PAIN
     Dates: start: 2002, end: 2011
  7. AMANTADINE HCL [Concomitant]
     Indication: PRODUCT USED FOR UNKNOWN INDICATION
     Route: 048
  8. OMEPRAZOLE [Concomitant]
     Indication: PRODUCT USED FOR UNKNOWN INDICATION
     Route: 048
  9. SYNTHROID [Concomitant]
     Indication: PRODUCT USED FOR UNKNOWN INDICATION
     Route: 048

REACTIONS (6)
  - Pneumonia [Recovered/Resolved]
  - Basedow^s disease [Recovered/Resolved]
  - Gastric ulcer [Unknown]
  - Oral candidiasis [Unknown]
  - Multiple sclerosis relapse [Unknown]
  - Influenza like illness [Unknown]
